FAERS Safety Report 7440387-9 (Version None)
Quarter: 2011Q2

REPORT INFORMATION
  Report Type: 
  Country: None (occurrence: None)
  Receive Date: 20110427
  Receipt Date: 20110425
  Transmission Date: 20111010
  Serious: Yes (Other)
  Sender: FDA-Public Use
  Company Number: US-PFIZER INC-2011089224

PATIENT
  Sex: Female
  Weight: 109 kg

DRUGS (10)
  1. HYDROCODONE [Concomitant]
     Indication: ARTHRITIS
  2. CELEBREX [Suspect]
     Indication: SPONDYLITIS
     Dosage: 200 MG, DAILY
     Route: 048
     Dates: start: 20110301
  3. CELEBREX [Suspect]
     Indication: ARTHRITIS
  4. FUROSEMIDE [Concomitant]
     Indication: FLUID RETENTION
     Dosage: 40 MG, DAILY
  5. LISINOPRIL [Concomitant]
     Indication: HYPERTENSION
     Dosage: 12.5 MG, DAILY
  6. LEVOTHYROXINE [Concomitant]
     Indication: THYROID DISORDER
     Dosage: 50 MG, DAILY
  7. CYMBALTA [Concomitant]
     Indication: DEPRESSION
     Dosage: 60 MG, DAILY
  8. LYRICA [Concomitant]
     Dosage: 150 MG, 3X/DAY
  9. HYDROCODONE [Concomitant]
     Indication: FIBROMYALGIA
     Dosage: 57.5 MG, DAILY
     Route: 048
  10. NEXIUM [Concomitant]
     Indication: GASTROOESOPHAGEAL REFLUX DISEASE
     Dosage: 40 MG, DAILY

REACTIONS (2)
  - PRURITUS [None]
  - SKIN DISORDER [None]
